FAERS Safety Report 6430803-3 (Version None)
Quarter: 2009Q4

REPORT INFORMATION
  Report Type: 
  Country: None (occurrence: None)
  Receive Date: 20091105
  Receipt Date: 20091105
  Transmission Date: 20100525
  Serious: Yes (Hospitalization)
  Sender: FDA-Public Use
  Company Number: None

PATIENT
  Sex: Male
  Weight: 280 kg

DRUGS (10)
  1. SIMVASTATIN [Suspect]
     Indication: HYPERLIPIDAEMIA
     Dosage: 20MG DAILY PO
     Route: 048
     Dates: start: 20070201, end: 20090901
  2. HYDROCHLOROTHIAZIDE [Concomitant]
  3. INSULIN [Concomitant]
  4. BENICAR [Concomitant]
  5. FENOFIBRATE [Concomitant]
  6. ATENOLOL [Concomitant]
  7. ANDROGEL [Concomitant]
  8. ASPIRIN [Concomitant]
  9. TIMOLOL [Concomitant]
  10. EYE DROPS [Concomitant]

REACTIONS (2)
  - FALL [None]
  - TENDON RUPTURE [None]
